FAERS Safety Report 21970821 (Version 3)
Quarter: 2023Q1

REPORT INFORMATION
  Report Type: Spontaneous
  Country: IT (occurrence: IT)
  Receive Date: 20230209
  Receipt Date: 20230325
  Transmission Date: 20230418
  Serious: Yes (Hospitalization)
  Sender: FDA-Public Use
  Company Number: IT-AMGEN-ITASP2023020700

PATIENT
  Age: 39 Year
  Sex: Female

DRUGS (1)
  1. AIMOVIG [Suspect]
     Active Substance: ERENUMAB-AOOE
     Indication: Migraine
     Dosage: 140 MG, QMO, (140 MG/ MESE)
     Route: 058
     Dates: start: 20220411

REACTIONS (2)
  - Lower limb fracture [Recovered/Resolved]
  - Callus formation delayed [Recovered/Resolved]

NARRATIVE: CASE EVENT DATE: 20220901
